FAERS Safety Report 10645258 (Version 1)
Quarter: 2014Q4

REPORT INFORMATION
  Report Type: Spontaneous
  Country: US (occurrence: None)
  Receive Date: 20141202
  Receipt Date: 20141202
  Transmission Date: 20150529
  Serious: No
  Sender: FDA-Public Use
  Company Number: 2014TUS004098

PATIENT
  Age: 60 Year
  Sex: Female
  Weight: 171 kg

DRUGS (5)
  1. CLONAZEPAM (CLONAZEPAM) [Concomitant]
  2. NEBIVOLOL (NEBIVOLOL) [Concomitant]
  3. ESTROGEN PATCH (ESTRADIOL) [Concomitant]
  4. NESINA [Suspect]
     Active Substance: ALOGLIPTIN BENZOATE
     Indication: DIABETES MELLITUS
     Route: 048
     Dates: start: 20140512, end: 20140513
  5. GLIMEPIRIDE (GLIMEPRIDE) [Concomitant]

REACTIONS (5)
  - Therapeutic response unexpected [None]
  - Dyspnoea [None]
  - Pruritus [None]
  - Energy increased [None]
  - Blood pressure increased [None]
